FAERS Safety Report 8430148-6 (Version None)
Quarter: 2012Q2

REPORT INFORMATION
  Report Type: 
  Country: None (occurrence: None)
  Receive Date: 20120612
  Receipt Date: 20120528
  Transmission Date: 20120825
  Serious: Yes (Other)
  Sender: FDA-Public Use
  Company Number: DE-ROCHE-1075622

PATIENT
  Age: 32 Year
  Sex: Female

DRUGS (3)
  1. TRASTUZUMAB [Suspect]
     Indication: BREAST CANCER METASTATIC
  2. IBANDRONATE SODIUM [Suspect]
     Indication: BREAST CANCER METASTATIC
  3. VINORELBINE [Suspect]
     Indication: BREAST CANCER METASTATIC

REACTIONS (2)
  - MATERNAL EXPOSURE DURING PREGNANCY [None]
  - OLIGOHYDRAMNIOS [None]
